FAERS Safety Report 24618496 (Version 1)
Quarter: 2024Q4

REPORT INFORMATION
  Report Type: Spontaneous
  Country: ZA (occurrence: ZA)
  Receive Date: 20241114
  Receipt Date: 20241114
  Transmission Date: 20250114
  Serious: Yes (Hospitalization, Other)
  Sender: ALEXION PHARMACEUTICALS
  Company Number: ZA-AstraZeneca-CH-00742906A

PATIENT
  Age: 92 Year

DRUGS (22)
  1. DAPAGLIFLOZIN [Suspect]
     Active Substance: DAPAGLIFLOZIN
     Indication: Diabetes mellitus
     Dosage: 5 MILLIGRAM
  2. DAPAGLIFLOZIN [Suspect]
     Active Substance: DAPAGLIFLOZIN
     Dosage: 5 MILLIGRAM
  3. DAPAGLIFLOZIN [Suspect]
     Active Substance: DAPAGLIFLOZIN
     Dosage: 5 MILLIGRAM
  4. DAPAGLIFLOZIN [Suspect]
     Active Substance: DAPAGLIFLOZIN
     Dosage: 5 MILLIGRAM
  5. FUCIDIN [Concomitant]
     Active Substance: FUSIDATE SODIUM
  6. FUCIDIN [Concomitant]
     Active Substance: FUSIDATE SODIUM
  7. MUPIROCIN [Concomitant]
     Active Substance: MUPIROCIN
  8. MUPIROCIN [Concomitant]
     Active Substance: MUPIROCIN
  9. DULOXETINE HYDROCHLORIDE [Concomitant]
     Active Substance: DULOXETINE HYDROCHLORIDE
     Indication: Depression
  10. DULOXETINE HYDROCHLORIDE [Concomitant]
     Active Substance: DULOXETINE HYDROCHLORIDE
  11. LATANOPROST [Concomitant]
     Active Substance: LATANOPROST
     Indication: Glaucoma
  12. LATANOPROST [Concomitant]
     Active Substance: LATANOPROST
  13. Sinutab [Concomitant]
  14. Sinutab [Concomitant]
  15. CANDESARTAN CILEXETIL [Concomitant]
     Active Substance: CANDESARTAN CILEXETIL
     Indication: Hypertension
  16. CANDESARTAN CILEXETIL [Concomitant]
     Active Substance: CANDESARTAN CILEXETIL
  17. ZEDRAST [Concomitant]
     Indication: Benign prostatic hyperplasia
  18. ZEDRAST [Concomitant]
  19. ZEDRAST [Concomitant]
  20. ZEDRAST [Concomitant]
  21. METFORMIN HYDROCHLORIDE [Concomitant]
     Active Substance: METFORMIN HYDROCHLORIDE
     Indication: Diabetes mellitus
  22. METFORMIN HYDROCHLORIDE [Concomitant]
     Active Substance: METFORMIN HYDROCHLORIDE

REACTIONS (2)
  - Fall [Unknown]
  - Respiratory failure [Unknown]
